FAERS Safety Report 15403044 (Version 1)
Quarter: 2018Q3

REPORT INFORMATION
  Report Type: Spontaneous
  Country: US (occurrence: US)
  Receive Date: 20180918
  Receipt Date: 20180918
  Transmission Date: 20181010
  Serious: Yes (Hospitalization)
  Sender: FDA-Public Use
  Company Number: None

PATIENT
  Sex: Male

DRUGS (8)
  1. OLANZAPRINE [Concomitant]
  2. PEPCID AC [Concomitant]
     Active Substance: FAMOTIDINE
  3. SULFATRIM [Concomitant]
     Active Substance: SULFAMETHOXAZOLE\TRIMETHOPRIM
  4. NEULASTA [Suspect]
     Active Substance: PEGFILGRASTIM
     Indication: NEOPLASM MALIGNANT
     Route: 058
     Dates: start: 20180309
  5. CYCLOPHOSPH [Concomitant]
  6. DACTINOMYCIN [Concomitant]
     Active Substance: DACTINOMYCIN
  7. VINCRISTINE [Concomitant]
     Active Substance: VINCRISTINE
  8. ZYRTEC ALLGY [Concomitant]

REACTIONS (1)
  - Hospitalisation [None]
